FAERS Safety Report 21850249 (Version 1)
Quarter: 2023Q1

REPORT INFORMATION
  Report Type: Spontaneous
  Country: US (occurrence: US)
  Receive Date: 20230111
  Receipt Date: 20230111
  Transmission Date: 20230417
  Serious: No
  Sender: FDA-Public Use
  Company Number: US-SUNOVION-2023SUN000011AA

PATIENT
  Sex: Male

DRUGS (1)
  1. LEVALBUTEROL TARTRATE [Suspect]
     Active Substance: LEVALBUTEROL TARTRATE
     Dosage: 45 ?G
     Route: 055

REACTIONS (3)
  - Device delivery system issue [Recovered/Resolved]
  - Device issue [Recovered/Resolved]
  - Asthma [Unknown]
